FAERS Safety Report 8472084-5 (Version None)
Quarter: 2012Q2

REPORT INFORMATION
  Report Type: 
  Country: None (occurrence: None)
  Receive Date: 20120323
  Receipt Date: 20110831
  Transmission Date: 20120825
  Serious: Yes (Hospitalization)
  Sender: FDA-Public Use
  Company Number: 163-21880-11090133

PATIENT
  Age: 69 Year
  Sex: Male

DRUGS (6)
  1. GARLIC (GARLIC) [Concomitant]
  2. ASPIRIN [Concomitant]
  3. LENALIDOMIDE [Suspect]
     Indication: MULTIPLE MYELOMA
     Dosage: 25 MG, /21 CAPS, PO
     Route: 048
     Dates: start: 20101227
  4. COUMADIN [Concomitant]
  5. OMEPRAZOLE [Concomitant]
  6. DEXAMETHASONE [Concomitant]

REACTIONS (3)
  - CONFUSIONAL STATE [None]
  - FATIGUE [None]
  - ASTHENIA [None]
